FAERS Safety Report 25637148 (Version 2)
Quarter: 2025Q3

REPORT INFORMATION
  Report Type: Spontaneous
  Country: EU (occurrence: EU)
  Receive Date: 20250804
  Receipt Date: 20250828
  Transmission Date: 20251021
  Serious: Yes (Hospitalization)
  Sender: AUROBINDO
  Company Number: EU-TEVA-2021-DE-1970893

PATIENT
  Age: 73 Year
  Sex: Female

DRUGS (26)
  1. ASPIRIN [Interacting]
     Active Substance: ASPIRIN
     Indication: Product used for unknown indication
     Dosage: 100 MILLIGRAM, ONCE A DAY (1 TABLET IN THE MORNING)
     Route: 048
  2. ASPIRIN [Interacting]
     Active Substance: ASPIRIN
     Dosage: UNK UNK, ONCE A DAY
     Route: 048
  3. LERCANIDIPINE [Suspect]
     Active Substance: LERCANIDIPINE
     Indication: Product used for unknown indication
     Dosage: 1 DOSAGE FORM, ONCE A DAY (1 DOSAGE FORM IS 1 TABLET)
     Route: 048
  4. LERCANIDIPINE [Suspect]
     Active Substance: LERCANIDIPINE
     Dosage: 5 DOSAGE FORM, ONCE A DAY (1 DOSAGE FORM IS 1 TABLET)
     Route: 048
  5. SIMVASTATIN [Suspect]
     Active Substance: SIMVASTATIN
     Indication: Product used for unknown indication
     Dosage: 20 MILLIGRAM, ONCE A DAY
     Route: 065
  6. SIMVASTATIN [Suspect]
     Active Substance: SIMVASTATIN
     Route: 065
  7. NITROGLYCERIN [Interacting]
     Active Substance: NITROGLYCERIN
     Indication: Product used for unknown indication
     Route: 048
  8. NEBIVOLOL [Interacting]
     Active Substance: NEBIVOLOL
     Indication: Palpitations
     Dosage: 5 MILLIGRAM, ONCE A DAY (DISCONTINED DUE TO)
     Route: 048
  9. NEBIVOLOL [Interacting]
     Active Substance: NEBIVOLOL
     Dosage: 5 MILLIGRAM, ONCE A DAY (DISCONTINED DUE TO)
     Route: 048
  10. NEBIVOLOL [Interacting]
     Active Substance: NEBIVOLOL
     Dosage: 2.5 MILLIGRAM, ONCE A DAY (HALF TABLET IN THE EVENING)
     Route: 048
  11. SIMVASTATIN [Interacting]
     Active Substance: SIMVASTATIN
     Indication: Product used for unknown indication
     Dosage: 20 MILLIGRAM, ONCE A DAY ( 1 TABLET IN THE EVENING)
     Route: 048
  12. POTASSIUM IODIDE [Interacting]
     Active Substance: POTASSIUM IODIDE
     Indication: Product used for unknown indication
     Dosage: 200 MILLIGRAM, ONCE A DAY (1 TABLET IN THE MORNING)
     Route: 048
  13. POTASSIUM IODIDE [Interacting]
     Active Substance: POTASSIUM IODIDE
     Dosage: 200 MILLIGRAM, ONCE A DAY (1 TABLET IN THE MORNING)
     Route: 048
  14. LISINOPRIL [Interacting]
     Active Substance: LISINOPRIL
     Indication: Hypertension
     Dosage: 2 UNK, ONCE A DAY (30 MILLIGRAM DAILY; 1 TABLETS IN THE MORNING AND 2 TABLETS IN THE EVENING)
     Route: 048
     Dates: end: 202110
  15. LISINOPRIL [Interacting]
     Active Substance: LISINOPRIL
     Dosage: 40 MILLIGRAM, ONCE A DAY (2 TABLETS IN THE MORNING AND 2 TABLETS IN THE EVENING)
     Route: 048
     Dates: start: 202110
  16. LISINOPRIL [Interacting]
     Active Substance: LISINOPRIL
     Route: 065
  17. LISINOPRIL [Interacting]
     Active Substance: LISINOPRIL
     Dosage: UNK UNK, ONCE A DAY
     Route: 065
  18. TORSEMIDE [Interacting]
     Active Substance: TORSEMIDE
     Indication: Hypertension
     Dosage: 5 MILLIGRAM, ONCE A DAY (1 TABLET IN THE MORNING)
     Route: 048
  19. PANTOPRAZOLE SODIUM [Interacting]
     Active Substance: PANTOPRAZOLE SODIUM
     Indication: Gastrooesophageal reflux disease
     Route: 048
  20. PANTOPRAZOLE SODIUM [Interacting]
     Active Substance: PANTOPRAZOLE SODIUM
     Route: 048
  21. TORSEMIDE [Suspect]
     Active Substance: TORSEMIDE
     Indication: Hypertension
     Dosage: 5 MILLIGRAM, ONCE A DAY
     Route: 065
  22. TORSEMIDE [Suspect]
     Active Substance: TORSEMIDE
     Route: 065
  23. TORSEMIDE [Suspect]
     Active Substance: TORSEMIDE
     Route: 065
  24. NITROGLYCERIN [Suspect]
     Active Substance: NITROGLYCERIN
     Indication: Product used for unknown indication
     Route: 065
  25. NITROGLYCERIN [Suspect]
     Active Substance: NITROGLYCERIN
     Route: 065
  26. Carmen [Concomitant]
     Indication: Product used for unknown indication
     Dosage: 1 DOSAGE FORM, ONCE A DAY (1 DOSAGE FORM IS ONE TABLET)
     Route: 048

REACTIONS (12)
  - Dyspnoea [Not Recovered/Not Resolved]
  - Nausea [Recovered/Resolved]
  - Fear [Unknown]
  - Fatigue [Unknown]
  - Micturition urgency [Recovered/Resolved]
  - Feeling cold [Unknown]
  - Blood pressure fluctuation [Unknown]
  - Drug interaction [Unknown]
  - Middle insomnia [Unknown]
  - Quality of life decreased [Recovered/Resolved]
  - Insomnia [Unknown]
  - Drug ineffective [Unknown]
